FAERS Safety Report 9445131 (Version 4)
Quarter: 2013Q4

REPORT INFORMATION
  Report Type: Spontaneous
  Country: DK (occurrence: None)
  Receive Date: 20130802
  Receipt Date: 20131024
  Transmission Date: 20140711
  Serious: Yes (Other)
  Sender: FDA-Public Use
  Company Number: 1816580

PATIENT
  Age: 62 Year
  Sex: Female

DRUGS (13)
  1. CARBOPLATIN [Suspect]
     Indication: BREAST CANCER
  2. GEMCITABINE HYDROCHLORIDE [Suspect]
     Indication: BREAST CANCER
  3. VINORELBINE TARTRATE [Suspect]
     Indication: BREAST CANCER
  4. EPIRUBICIN HYDROCHLORIDE [Suspect]
     Indication: BREAST CANCER
  5. FLUOROURACIL [Suspect]
     Indication: BREAST CANCER
  6. METHOTREXATE [Suspect]
     Indication: BREAST CANCER
  7. TRASTUZUMAB [Suspect]
     Indication: BREAST CANCER
  8. CAPECITABINE [Suspect]
     Indication: BREAST CANCER
  9. ERIBULIN [Suspect]
     Indication: BREAST CANCER
  10. DOCETAXEL [Suspect]
     Indication: BREAST CANCER
  11. LAPATINIB [Suspect]
     Indication: BREAST CANCER
     Dates: start: 20100719
  12. CYCLOPHOSPHAMIDE [Suspect]
     Indication: BREAST CANCER
  13. ENALAPRIL MALEATE [Concomitant]

REACTIONS (5)
  - HER-2 positive breast cancer [None]
  - Malignant neoplasm progression [None]
  - Therapeutic response decreased [None]
  - Drug intolerance [None]
  - Cardiac disorder [None]
